FAERS Safety Report 7406704-0 (Version None)
Quarter: 2011Q2

REPORT INFORMATION
  Report Type: 
  Country: None (occurrence: None)
  Receive Date: 20110401
  Receipt Date: 20110329
  Transmission Date: 20111010
  Serious: Yes (Death, Hospitalization, Other)
  Sender: FDA-Public Use
  Company Number: 2010US004328

PATIENT
  Age: 65 Year
  Sex: Male

DRUGS (17)
  1. LANTUS [Concomitant]
  2. FAMVIR [Concomitant]
  3. INSULIN (INSULIN) [Concomitant]
  4. CORTICOSTEROID NOS (CORTICOSTEROID NOS) [Concomitant]
  5. JANUVIA [Concomitant]
  6. PREDNISONE [Concomitant]
  7. ASPIRIN [Concomitant]
  8. VELCADE [Concomitant]
  9. LIPITOR [Concomitant]
  10. TRAZODONE (TRAZODONE) [Concomitant]
  11. PROGRAF [Suspect]
     Indication: RENAL TRANSPLANT
     Dosage: 2.5 MG, UID/QD, ORAL
     Route: 048
     Dates: start: 20091120, end: 20101110
  12. METOPROLOL (METOPROLOL) [Concomitant]
  13. ALEFACEPT (ALEFACEPT) INJECTION [Suspect]
     Indication: RENAL TRANSPLANT
     Dosage: 7.5 MG, TOTAL DOSE, IV NOS; 15 MG, WEEKLY, SUBCUTANEOUS
     Dates: start: 20091127, end: 20100310
  14. ALEFACEPT (ALEFACEPT) INJECTION [Suspect]
     Indication: RENAL TRANSPLANT
     Dosage: 7.5 MG, TOTAL DOSE, IV NOS; 15 MG, WEEKLY, SUBCUTANEOUS
     Dates: start: 20091120, end: 20091120
  15. ALEFACEPT (ALEFACEPT) INJECTION [Suspect]
     Indication: RENAL TRANSPLANT
     Dosage: 7.5 MG, TOTAL DOSE, IV NOS; 15 MG, WEEKLY, SUBCUTANEOUS
     Dates: start: 20091123, end: 20091123
  16. SERTRALINE HYDROCHLORIDE [Concomitant]
  17. MELPHALAN HYDROCHLORIDE [Concomitant]

REACTIONS (11)
  - ASPERGILLOSIS [None]
  - FEBRILE NEUTROPENIA [None]
  - RESPIRATORY FAILURE [None]
  - CULTURE POSITIVE [None]
  - STREPTOCOCCAL BACTERAEMIA [None]
  - PULMONARY HYPERTENSION [None]
  - PNEUMONIA MYCOPLASMAL [None]
  - LEUKOPENIA [None]
  - BRONCHOPULMONARY ASPERGILLOSIS [None]
  - THROMBOCYTOPENIA [None]
  - PSEUDOMONAS INFECTION [None]
